FAERS Safety Report 7972814-2 (Version None)
Quarter: 2011Q4

REPORT INFORMATION
  Report Type: 
  Country: None (occurrence: None)
  Receive Date: 20111213
  Receipt Date: 20111202
  Transmission Date: 20120403
  Serious: Yes (Hospitalization)
  Sender: FDA-Public Use
  Company Number: US-ROCHE-702910

PATIENT
  Sex: Female

DRUGS (16)
  1. NEURONTIN [Concomitant]
  2. PEPCID [Concomitant]
  3. LISINOPRIL [Concomitant]
  4. MULTI-VITAMIN [Concomitant]
     Dates: start: 20070121
  5. PAMELOR [Concomitant]
  6. CYCLOPHOSPHAMIDE [Suspect]
     Indication: PROPHYLAXIS AGAINST TRANSPLANT REJECTION
     Route: 048
  7. OXYCONTIN [Concomitant]
  8. XANAX [Concomitant]
  9. NITROGLYCERIN [Concomitant]
  10. METOPROLOL TARTRATE [Concomitant]
  11. NORTRIPTYLINE HCL [Concomitant]
     Dates: start: 20091211
  12. PREDNISONE TAB [Suspect]
     Indication: PROPHYLAXIS AGAINST TRANSPLANT REJECTION
     Route: 048
  13. COLACE [Concomitant]
  14. HYDROCODONE [Concomitant]
  15. PRAVASTATIN [Concomitant]
  16. MYCOPHENOLATE MOFETIL (CELLCEPT) [Suspect]
     Indication: PROPHYLAXIS AGAINST TRANSPLANT REJECTION
     Route: 048

REACTIONS (3)
  - CHEST PAIN [None]
  - TRANSPLANT REJECTION [None]
  - PYELONEPHRITIS [None]
